FAERS Safety Report 24585865 (Version 1)
Quarter: 2024Q4

REPORT INFORMATION
  Report Type: Report from Study
  Country: US (occurrence: US)
  Receive Date: 20241106
  Receipt Date: 20241106
  Transmission Date: 20250114
  Serious: Yes (Other)
  Sender: ALEXION PHARMACEUTICALS
  Company Number: US-AstraZeneca-CH-00737020A

PATIENT
  Age: 35 Year

DRUGS (4)
  1. STRENSIQ [Suspect]
     Active Substance: ASFOTASE ALFA
     Indication: Hypophosphatasia
     Dosage: UNK
  2. STRENSIQ [Suspect]
     Active Substance: ASFOTASE ALFA
     Dosage: UNK
  3. STRENSIQ [Suspect]
     Active Substance: ASFOTASE ALFA
     Dosage: UNK
  4. STRENSIQ [Suspect]
     Active Substance: ASFOTASE ALFA
     Dosage: UNK

REACTIONS (13)
  - Mental impairment [Unknown]
  - Oropharyngeal discomfort [Recovering/Resolving]
  - Dyspepsia [Unknown]
  - Diarrhoea [Recovering/Resolving]
  - Paranoia [Recovering/Resolving]
  - Bradycardia [Recovering/Resolving]
  - Pain [Recovering/Resolving]
  - Chest discomfort [Unknown]
  - Constipation [Unknown]
  - Pharyngeal swelling [Unknown]
  - Fatigue [Unknown]
  - Fungal infection [Unknown]
  - Throat irritation [Unknown]
